FAERS Safety Report 4885347-7 (Version None)
Quarter: 2005Q4

REPORT INFORMATION
  Report Type: 
  Country: None (occurrence: None)
  Receive Date: 20051223
  Receipt Date: 20050907
  Transmission Date: 20060501
  Serious: Yes (Disabling, Other)
  Sender: FDA-Public Use
  Company Number: USA021123477

PATIENT
  Age: 51 Year
  Sex: Female
  Weight: 73 kg

DRUGS (12)
  1. HUMULIN R [Suspect]
     Indication: DIABETES MELLITUS
     Dates: start: 19850101
  2. HUMALOG [Suspect]
     Indication: DIABETES MELLITUS
  3. HUMULIN N [Suspect]
     Indication: DIABETES MELLITUS
     Dosage: 25 U DAY
  4. LASIX [Concomitant]
  5. DIGOXIN [Concomitant]
  6. ZOCOR [Concomitant]
  7. ZAROXOLYN [Concomitant]
  8. COREG [Concomitant]
  9. COLCHICINE [Concomitant]
  10. ALLOPURINOL [Concomitant]
  11. SPIRONOLACTONE [Concomitant]
  12. LANTUS [Concomitant]

REACTIONS (8)
  - BLINDNESS [None]
  - CARDIAC DISORDER [None]
  - CATARACT [None]
  - GLAUCOMA [None]
  - OEDEMA PERIPHERAL [None]
  - RENAL DISORDER [None]
  - RETINAL DETACHMENT [None]
  - VISUAL ACUITY REDUCED [None]
